FAERS Safety Report 9235568 (Version 2)
Quarter: 2013Q2

REPORT INFORMATION
  Report Type: Spontaneous
  Country: US (occurrence: US)
  Receive Date: 20130417
  Receipt Date: 20130529
  Transmission Date: 20140414
  Serious: Yes (Other)
  Sender: FDA-Public Use
  Company Number: US-JNJFOC-20130404458

PATIENT
  Age: 49 Year
  Sex: Female
  Weight: 115.67 kg

DRUGS (11)
  1. SIMPONI [Suspect]
     Indication: ANKYLOSING SPONDYLITIS
     Route: 058
     Dates: start: 201104, end: 201302
  2. SIMPONI [Suspect]
     Indication: ANKYLOSING SPONDYLITIS
     Route: 058
     Dates: start: 201302
  3. LOSARTAN [Concomitant]
     Indication: HYPERTENSION
     Route: 048
     Dates: start: 2011
  4. MELOXICAM [Concomitant]
     Indication: ANKYLOSING SPONDYLITIS
     Route: 048
     Dates: start: 2011
  5. TIZANIDINE [Concomitant]
     Indication: FIBROMYALGIA
     Dosage: FREQUENCY: AS NEEDED
     Route: 048
     Dates: start: 2011
  6. TIZANIDINE [Concomitant]
     Indication: FIBROMYALGIA
     Dosage: FREQUENCY: AS NEEDED
     Route: 048
     Dates: start: 2011
  7. SULFASALAZINE [Concomitant]
     Indication: ANKYLOSING SPONDYLITIS
     Route: 048
     Dates: start: 2012
  8. SYMBICORT [Concomitant]
     Indication: ASTHMA
     Dosage: DOSE: 1 PUFF; STRENGTH: 160/4.5
     Route: 055
     Dates: start: 2012
  9. ZYRTEC [Concomitant]
     Indication: MULTIPLE ALLERGIES
     Route: 048
     Dates: start: 2010
  10. PRO AIR [Concomitant]
     Indication: ASTHMA
     Dosage: DOSE: 1 PUFF
     Route: 055
  11. MULTIVITAMINS [Concomitant]
     Route: 048

REACTIONS (5)
  - Asthma [Not Recovered/Not Resolved]
  - Seasonal allergy [Not Recovered/Not Resolved]
  - Sinusitis [Recovered/Resolved]
  - Drug dose omission [Unknown]
  - Device malfunction [Unknown]
